FAERS Safety Report 5117105-2 (Version None)
Quarter: 2006Q3

REPORT INFORMATION
  Report Type: 
  Country: None (occurrence: None)
  Receive Date: 20060925
  Receipt Date: 20060911
  Transmission Date: 20061208
  Serious: Yes (Other)
  Sender: FDA-Public Use
  Company Number: 2005165054

PATIENT
  Age: 74 Year
  Sex: Male
  Weight: 90 kg

DRUGS (13)
  1. LYRICA [Suspect]
     Indication: POST HERPETIC NEURALGIA
     Dosage: 75 MG (FREQUENCY:  DAILY), ORAL
     Route: 048
     Dates: start: 20041027, end: 20050101
  2. EBRANTIL (URAPIDIL) [Concomitant]
  3. AMIOBETA (AMIODARONE HYDROCHLORIDE) [Concomitant]
  4. ASPIRIN [Concomitant]
  5. CASODEX [Concomitant]
  6. MOXONIDINE (MOXONIDINE) [Concomitant]
  7. RAMIPRIL [Concomitant]
  8. ALLOPURINOL [Concomitant]
  9. LEVOTHYROXINE SODIUM [Concomitant]
  10. XIPAMIDE (XIPAMIDE) [Concomitant]
  11. BISOPROLOL FUMARATE [Concomitant]
  12. TAMSULOSIN HCL [Concomitant]
  13. LACTULOSE [Concomitant]

REACTIONS (6)
  - BLOOD CREATINE INCREASED [None]
  - BRONCHOPNEUMONIA [None]
  - CARDIAC FAILURE [None]
  - HYPERTENSIVE CRISIS [None]
  - OEDEMA [None]
  - WEIGHT INCREASED [None]
